FAERS Safety Report 14283654 (Version 1)
Quarter: 2017Q4

REPORT INFORMATION
  Report Type: Spontaneous
  Country: US (occurrence: US)
  Receive Date: 20171214
  Receipt Date: 20171214
  Transmission Date: 20180321
  Serious: No
  Sender: FDA-Public Use
  Company Number: PHEH2017US039115

PATIENT
  Sex: Female
  Weight: 72.18 kg

DRUGS (2)
  1. TACROLIMUS. [Suspect]
     Active Substance: TACROLIMUS
     Indication: GIANT PAPILLARY CONJUNCTIVITIS
     Dosage: 2 DF, QD
     Route: 065
     Dates: start: 20171101
  2. PAZEO [Concomitant]
     Active Substance: OLOPATADINE HYDROCHLORIDE
     Indication: EYE ALLERGY
     Dosage: 0.7 %, UNK
     Route: 047

REACTIONS (3)
  - Blister [Not Recovered/Not Resolved]
  - Eye pain [Not Recovered/Not Resolved]
  - Hypersensitivity [Not Recovered/Not Resolved]
